FAERS Safety Report 16804255 (Version 1)
Quarter: 2019Q3

REPORT INFORMATION
  Report Type: Report from Study
  Country: FR (occurrence: FR)
  Receive Date: 20190913
  Receipt Date: 20190913
  Transmission Date: 20191005
  Serious: Yes (Other)
  Sender: FDA-Public Use
  Company Number: FR-ACCORD-030401

PATIENT
  Age: 62 Year
  Sex: Male

DRUGS (1)
  1. METHOTREXATE. [Suspect]
     Active Substance: METHOTREXATE
     Indication: PSORIATIC ARTHROPATHY
     Dosage: DRUG WAS DISCONTINUED FOR 12 WEEKS THEN REINTIATED.
     Route: 058

REACTIONS (2)
  - Off label use [Unknown]
  - Hepatitis E [Recovered/Resolved]
